FAERS Safety Report 13793655 (Version 3)
Quarter: 2023Q1

REPORT INFORMATION
  Report Type: Report from Study
  Country: US (occurrence: US)
  Receive Date: 20170726
  Receipt Date: 20230317
  Transmission Date: 20230417
  Serious: Yes (Other)
  Sender: FDA-Public Use
  Company Number: US-JAZZ-2017-US-009053

PATIENT
  Sex: Female
  Weight: 58.503 kg

DRUGS (22)
  1. XYREM [Suspect]
     Active Substance: SODIUM OXYBATE
     Indication: Narcolepsy
     Dosage: 2.5 G, BID
     Route: 048
     Dates: start: 200705, end: 200712
  2. XYREM [Suspect]
     Active Substance: SODIUM OXYBATE
     Indication: Cataplexy
     Dosage: DOSE ADJUSTMENT
     Route: 048
     Dates: start: 200712, end: 2009
  3. XYREM [Suspect]
     Active Substance: SODIUM OXYBATE
     Indication: Somnolence
     Dosage: 3.75 G, BID
     Route: 048
     Dates: start: 200909
  4. NORCO [Concomitant]
     Active Substance: ACETAMINOPHEN\HYDROCODONE BITARTRATE
  5. VALIUM [Concomitant]
     Active Substance: DIAZEPAM
  6. LEVOTHYROXINE [Concomitant]
     Active Substance: LEVOTHYROXINE
  7. ORACEA [Concomitant]
     Active Substance: DOXYCYCLINE
  8. ETODOLAC [Concomitant]
     Active Substance: ETODOLAC
  9. PREDNISONE [Concomitant]
     Active Substance: PREDNISONE
  10. DICLOFENAC SODIUM [Concomitant]
     Active Substance: DICLOFENAC SODIUM
  11. FEMCON FE [Concomitant]
     Active Substance: ETHINYL ESTRADIOL\NORETHINDRONE ACETATE
  12. LEVOXYL [Concomitant]
     Active Substance: LEVOTHYROXINE SODIUM
  13. LYSINE [Concomitant]
     Active Substance: LYSINE
  14. VITAMINS [Concomitant]
     Active Substance: VITAMINS
  15. PROVIGIL [Concomitant]
     Active Substance: MODAFINIL
  16. VITAMIN C [Concomitant]
     Active Substance: ASCORBIC ACID
  17. WELLBUTRIN [Concomitant]
     Active Substance: BUPROPION HYDROCHLORIDE
  18. METHOTREXATE [Concomitant]
     Active Substance: METHOTREXATE
     Dosage: UNK
  19. FOLIC ACID [Concomitant]
     Active Substance: FOLIC ACID
  20. PHENTERMINE [Concomitant]
     Active Substance: PHENTERMINE
  21. ARMOUR THYROID [Concomitant]
     Active Substance: THYROID, PORCINE
  22. CYMBALTA [Concomitant]
     Active Substance: DULOXETINE HYDROCHLORIDE
     Indication: Product used for unknown indication
     Dosage: UNK
     Dates: start: 20220810

REACTIONS (7)
  - Sinus operation [Recovered/Resolved]
  - Sinus headache [Unknown]
  - Gastrointestinal hypomotility [Unknown]
  - Psoriasis [Unknown]
  - Periodic limb movement disorder [Unknown]
  - Fatigue [Not Recovered/Not Resolved]
  - Drug ineffective [Unknown]

NARRATIVE: CASE EVENT DATE: 20160101
